FAERS Safety Report 18941796 (Version 1)
Quarter: 2021Q1

REPORT INFORMATION
  Report Type: Spontaneous
  Country: DE (occurrence: DE)
  Receive Date: 20210225
  Receipt Date: 20210225
  Transmission Date: 20210420
  Serious: Yes (Other)
  Sender: FDA-Public Use
  Company Number: NVSC2021DE035650

PATIENT
  Sex: Male

DRUGS (1)
  1. ADALIMUMAB [Suspect]
     Active Substance: ADALIMUMAB
     Indication: PRODUCT USED FOR UNKNOWN INDICATION
     Dosage: 40 MG, QW (40 MILLIGRAM, QWK)
     Route: 065
     Dates: start: 202010

REACTIONS (2)
  - Hidradenitis [Unknown]
  - Uveitis [Unknown]

NARRATIVE: CASE EVENT DATE: 202012
